FAERS Safety Report 6103072-1 (Version None)
Quarter: 2009Q1

REPORT INFORMATION
  Report Type: 
  Country: None (occurrence: None)
  Receive Date: 20090305
  Receipt Date: 20090225
  Transmission Date: 20090719
  Serious: Yes (Other)
  Sender: FDA-Public Use
  Company Number: ES-JNJFOC-20090300173

PATIENT
  Age: 20 Year
  Sex: Female

DRUGS (3)
  1. RISPERDAL CONSTA [Suspect]
     Route: 030
  2. RISPERDAL CONSTA [Suspect]
     Indication: SCHIZOPHRENIA
     Route: 030
  3. QUETIAPINE FUMARATE [Concomitant]
     Indication: SCHIZOPHRENIA
     Route: 065

REACTIONS (3)
  - EPISTAXIS [None]
  - HAEMATURIA [None]
  - RENAL COLIC [None]
